FAERS Safety Report 4458959-2 (Version None)
Quarter: 2004Q3

REPORT INFORMATION
  Report Type: 
  Country: None (occurrence: None)
  Receive Date: 20040923
  Receipt Date: 20040923
  Transmission Date: 20050211
  Serious: No
  Sender: FDA-Public Use
  Company Number: None

PATIENT
  Sex: Female

DRUGS (3)
  1. CRYSELLE [Suspect]
     Indication: DYSMENORRHOEA
     Dosage: 1 DAILY PO/WITH PREVIOUS PHYSICIAN IN ANOTHER STSTE
     Route: 048
  2. LO-OGESTREL SPOTTING [Suspect]
     Indication: HORMONE LEVEL ABNORMAL
     Dosage: 1 DAILY PO
     Route: 048
  3. ORTHO-CEPT [Suspect]

REACTIONS (1)
  - DRUG INTOLERANCE [None]
